FAERS Safety Report 6566567-2 (Version None)
Quarter: 2010Q1

REPORT INFORMATION
  Report Type: 
  Country: None (occurrence: None)
  Receive Date: 20100202
  Receipt Date: 20100127
  Transmission Date: 20100710
  Serious: Yes (Other)
  Sender: FDA-Public Use
  Company Number: US-PFIZER INC-2010003057

PATIENT
  Sex: Male
  Weight: 88.5 kg

DRUGS (3)
  1. CELEBREX [Suspect]
     Indication: MUSCULOSKELETAL PAIN
     Dosage: 200 MG/DAY
     Route: 048
     Dates: start: 20091101, end: 20091230
  2. CELEBREX [Suspect]
     Indication: OSTEOARTHRITIS
  3. NEXIUM [Concomitant]
     Dosage: UNK

REACTIONS (1)
  - ERYTHEMA NODOSUM [None]
